FAERS Safety Report 10877557 (Version 1)
Quarter: 2015Q1

REPORT INFORMATION
  Report Type: Spontaneous
  Country: US (occurrence: None)
  Receive Date: 20150224
  Receipt Date: 20150224
  Transmission Date: 20150721
  Serious: Yes (Life-Threatening, Hospitalization, Disabling, Other)
  Sender: FDA-Public Use
  Company Number: None

PATIENT
  Age: 24 Year
  Sex: Male
  Weight: 74.84 kg

DRUGS (7)
  1. CLOZAPINE. [Suspect]
     Active Substance: CLOZAPINE
     Dosage: UP TO 250 MG
     Dates: start: 201205
  2. CLOMIPRAMINE [Suspect]
     Active Substance: CLOMIPRAMINE
     Indication: OBSESSIVE-COMPULSIVE DISORDER
     Dosage: UP TO 200 MG
     Dates: start: 201212
  3. DEPLIN [Suspect]
     Active Substance: LEVOMEFOLATE CALCIUM
     Dates: start: 201310
  4. INDERAL [Concomitant]
     Active Substance: PROPRANOLOL HYDROCHLORIDE
  5. CLOZAPINE. [Suspect]
     Active Substance: CLOZAPINE
     Indication: PSYCHOTIC DISORDER
     Dosage: UP TO 250 MG
     Dates: start: 201205
  6. TRILEPTAL [Suspect]
     Active Substance: OXCARBAZEPINE
     Indication: SEIZURE
     Dates: start: 201306
  7. PROTONIX [Concomitant]
     Active Substance: PANTOPRAZOLE SODIUM

REACTIONS (9)
  - Loss of consciousness [None]
  - Seizure [None]
  - Fall [None]
  - Drug prescribing error [None]
  - Wrong drug administered [None]
  - Neurotoxicity [None]
  - Gastrointestinal pain [None]
  - Aggression [None]
  - Incorrect dose administered [None]
